FAERS Safety Report 4371426-X (Version None)
Quarter: 2004Q2

REPORT INFORMATION
  Report Type: 
  Country: None (occurrence: None)
  Receive Date: 20040607
  Receipt Date: 20040525
  Transmission Date: 20050107
  Serious: Yes (Other)
  Sender: FDA-Public Use
  Company Number: PHNR2004AU00997

PATIENT
  Age: 29 Year
  Sex: Female

DRUGS (5)
  1. SYNTOCINON [Suspect]
  2. KEFLEX [Suspect]
     Dosage: 2 G DAILY
     Route: 042
     Dates: start: 20020811, end: 20020811
  3. BUPIVACAINE W/FENTANYL [Suspect]
  4. INDOCIN [Suspect]
     Dates: start: 20020811, end: 20020812
  5. ACETAMINOPHEN W/ CODEINE [Suspect]
     Dosage: 2 DAILY (DOSE UNSPECIFIED)
     Route: 048
     Dates: start: 20020811, end: 20020812

REACTIONS (5)
  - FACE OEDEMA [None]
  - PRURITUS [None]
  - RASH GENERALISED [None]
  - RASH PRURITIC [None]
  - TONGUE OEDEMA [None]
